FAERS Safety Report 26096001 (Version 1)
Quarter: 2025Q4

REPORT INFORMATION
  Report Type: Report from Study
  Country: IN (occurrence: IN)
  Receive Date: 20251127
  Receipt Date: 20251127
  Transmission Date: 20260117
  Serious: Yes (Life-Threatening, Hospitalization, Other)
  Sender: ALEXION PHARMACEUTICALS
  Company Number: IN-AstraZeneca-CH-01000923A

PATIENT
  Sex: Female

DRUGS (1)
  1. DURVALUMAB [Suspect]
     Active Substance: DURVALUMAB
     Indication: Metastatic neoplasm
     Dosage: 1500 MILLIGRAM, Q3W

REACTIONS (4)
  - Septic shock [Unknown]
  - Haemorrhage [Unknown]
  - Weight decreased [Unknown]
  - Dyspnoea [Unknown]
